FAERS Safety Report 6386278-6 (Version None)
Quarter: 2009Q4

REPORT INFORMATION
  Report Type: 
  Country: None (occurrence: None)
  Receive Date: 20091002
  Receipt Date: 20090902
  Transmission Date: 20100525
  Serious: No
  Sender: FDA-Public Use
  Company Number: US-BAYER-200914142BCC

PATIENT
  Sex: Female

DRUGS (1)
  1. MIDOL [Suspect]
     Indication: BACK PAIN
     Dosage: CONSUMER REPORTED THAT SHE CUT THE PILL AND CRUSHED IT.
     Route: 048

REACTIONS (2)
  - THROAT IRRITATION [None]
  - THROAT TIGHTNESS [None]
